FAERS Safety Report 8439379 (Version 2)
Quarter: 2013Q2

REPORT INFORMATION
  Report Type: Spontaneous
  Country: US (occurrence: None)
  Receive Date: 20120104
  Receipt Date: 20120508
  Transmission Date: 20140414
  Serious: Yes (Other)
  Sender: FDA-Public Use
  Company Number: 2011HGS-002611

PATIENT
  Age: 59 Year
  Sex: Female
  Weight: 45.81 kg

DRUGS (5)
  1. BENLYSTA [Suspect]
     Indication: SYSTEMIC LUPUS ERYTHEMATOSUS
     Dosage: 10 MG/KG, 1 IN 28 D, INTRAVENOUS DRIP
     Route: 041
     Dates: start: 20110712, end: 20111202
  2. PLAQUENIL [Concomitant]
  3. PREDNISONE [Concomitant]
  4. ATELVIA (RISEDRONATE SODIUM) [Concomitant]
  5. COLCRYS (COLCHICINE) [Concomitant]

REACTIONS (17)
  - SYSTEMIC LUPUS ERYTHEMATOSUS [None]
  - SWELLING FACE [None]
  - ARTHRALGIA [None]
  - Dry eye [None]
  - PAIN [None]
  - FATIGUE [None]
  - PYREXIA [None]
  - HEADACHE [None]
  - INFECTION [None]
  - Gingivitis [None]
  - CYSTITIS [None]
  - HYPOTENSION [None]
  - URINARY TRACT INFECTION [None]
  - UPPER RESPIRATORY TRACT INFECTION [None]
  - CONDITION AGGRAVATED [None]
  - Arthritis [None]
  - Sjogren^s syndrome [None]
